FAERS Safety Report 7572303 (Version 2)
Quarter: 2013Q1

REPORT INFORMATION
  Report Type: Spontaneous
  Country: US (occurrence: None)
  Receive Date: 20100825
  Receipt Date: 20130225
  Transmission Date: 20140127
  Serious: Yes (Hospitalization, Other)
  Sender: FDA-Public Use
  Company Number: 2010AP001732

PATIENT
  Age: 80 Year
  Sex: Female

DRUGS (10)
  1. LEVETIRACETAM [Suspect]
     Dosage: 1000 MG; BID;
  2. AMIODARONE HYDROCHLORIDE [Suspect]
     Dosage: 400 MG; BID; PO, 200 MG; QD;
     Route: 048
  3. PHENYTOIN [Concomitant]
  4. METOPROLOL TARTRATE [Concomitant]
  5. WARFARIN SODIUM [Concomitant]
  6. FUROSEMIDE [Concomitant]
  7. AMLODIPINE [Concomitant]
  8. TELMISARTAN [Concomitant]
  9. SERTRALINE HYDROCHLORIDE [Concomitant]
  10. LEVOTHYROXINE [Concomitant]

REACTIONS (14)
  - Depressed level of consciousness [None]
  - Poverty of thought content [None]
  - Disturbance in attention [None]
  - Impaired self-care [None]
  - Cardiac failure congestive [None]
  - Thyroxine free increased [None]
  - Hyperthyroidism [None]
  - Blood thyroid stimulating hormone decreased [None]
  - Atrial fibrillation [None]
  - Confusional state [None]
  - Irritability [None]
  - Depression [None]
  - Idiosyncratic drug reaction [None]
  - Delirium [None]
